FAERS Safety Report 19881984 (Version 1)
Quarter: 2021Q3

REPORT INFORMATION
  Report Type: Spontaneous
  Country: IN (occurrence: IN)
  Receive Date: 20210924
  Receipt Date: 20210924
  Transmission Date: 20211014
  Serious: Yes (Death, Hospitalization, Other)
  Sender: FDA-Public Use
  Company Number: IN-PFIZER INC-2017419412

PATIENT
  Age: 43 Year
  Sex: Male

DRUGS (1)
  1. ANTILYMPHOCYTE IMMUNOGLOBULINS [Suspect]
     Active Substance: THYMOCYTE IMMUNE GLOBULIN NOS
     Dosage: 75 MG, UNK (OVER A PERIOD OF 6 H)

REACTIONS (2)
  - Coagulopathy [Unknown]
  - Hypotension [Fatal]
